FAERS Safety Report 12161679 (Version 1)
Quarter: 2016Q1

REPORT INFORMATION
  Report Type: Spontaneous
  Country: US (occurrence: US)
  Receive Date: 20160309
  Receipt Date: 20160309
  Transmission Date: 20160526
  Serious: Yes (Other)
  Sender: FDA-Public Use
  Company Number: US-BEH-2016059449

PATIENT
  Sex: Female
  Weight: 32 kg

DRUGS (7)
  1. HIZENTRA [Suspect]
     Active Substance: HUMAN IMMUNOGLOBULIN G
     Indication: HYPOGAMMAGLOBULINAEMIA
     Route: 058
     Dates: start: 20160114
  2. LIDOCAINE. [Concomitant]
     Active Substance: LIDOCAINE
  3. EPIPEN [Concomitant]
     Active Substance: EPINEPHRINE
  4. QUILLIVANT XR [Concomitant]
     Active Substance: METHYLPHENIDATE HYDROCHLORIDE
  5. MULTIVITAMINS [Concomitant]
     Active Substance: VITAMINS
  6. PROBIOTIC [Concomitant]
     Active Substance: PROBIOTICS NOS
  7. FISH OIL [Concomitant]
     Active Substance: FISH OIL

REACTIONS (1)
  - Gastric infection [Unknown]
